FAERS Safety Report 4871850-2 (Version None)
Quarter: 2006Q1

REPORT INFORMATION
  Report Type: 
  Country: None (occurrence: None)
  Receive Date: 20060104
  Receipt Date: 20050914
  Transmission Date: 20060701
  Serious: Yes (Hospitalization)
  Sender: FDA-Public Use
  Company Number: US-MERCK-0509USA02230

PATIENT
  Age: 50 Year
  Sex: Male
  Weight: 109 kg

DRUGS (6)
  1. PERCOCET [Concomitant]
     Route: 065
  2. NAPROXEN [Concomitant]
     Indication: PAIN
     Route: 065
  3. NAPROXEN [Concomitant]
     Indication: HEADACHE
     Route: 065
  4. ASPIRIN [Concomitant]
     Route: 065
  5. VIOXX [Suspect]
     Indication: BACK INJURY
     Route: 048
     Dates: start: 19990401, end: 20030501
  6. CELEBREX [Concomitant]
     Route: 065

REACTIONS (30)
  - ADVERSE EVENT [None]
  - ANGINA UNSTABLE [None]
  - ANXIETY [None]
  - BACK DISORDER [None]
  - BLOOD PRESSURE INCREASED [None]
  - CELLULITIS [None]
  - CHEST DISCOMFORT [None]
  - CHEST PAIN [None]
  - CORONARY ARTERY OCCLUSION [None]
  - CORONARY ARTERY STENOSIS [None]
  - DERMATITIS CONTACT [None]
  - DIZZINESS [None]
  - DYSPEPSIA [None]
  - FLATULENCE [None]
  - GASTROINTESTINAL DISORDER [None]
  - GOUT [None]
  - HAEMORRHOID OPERATION [None]
  - HEADACHE [None]
  - HYPERCHOLESTEROLAEMIA [None]
  - HYPERLIPIDAEMIA [None]
  - INTESTINAL FUNCTIONAL DISORDER [None]
  - MUSCLE SPASMS [None]
  - MYOCARDIAL INFARCTION [None]
  - MYOCARDIAL ISCHAEMIA [None]
  - NON-CARDIAC CHEST PAIN [None]
  - OBSTRUCTIVE UROPATHY [None]
  - RASH [None]
  - RECTAL HAEMORRHAGE [None]
  - RENAL FAILURE [None]
  - TENSION HEADACHE [None]
